FAERS Safety Report 9806042 (Version 1)
Quarter: 2014Q1

REPORT INFORMATION
  Report Type: Spontaneous
  Country: US (occurrence: None)
  Receive Date: 20140108
  Receipt Date: 20140108
  Transmission Date: 20141002
  Serious: Yes (Hospitalization)
  Sender: FDA-Public Use
  Company Number: None

PATIENT
  Age: 65 Year
  Sex: Female
  Weight: 55.7 kg

DRUGS (3)
  1. TAXOL [Suspect]
     Dosage: 168MG EVERY OTHER WEEK INTRANVENOUS
  2. HYDREA [Concomitant]
  3. 5 FU [Suspect]
     Dosage: 1000 MG INTRAVENOUS

REACTIONS (4)
  - Confusional state [None]
  - Nausea [None]
  - Vomiting [None]
  - Drug effect increased [None]
